FAERS Safety Report 8214548-5 (Version None)
Quarter: 2012Q1

REPORT INFORMATION
  Report Type: 
  Country: None (occurrence: None)
  Receive Date: 20120316
  Receipt Date: 20120308
  Transmission Date: 20120608
  Serious: Yes (Other)
  Sender: FDA-Public Use
  Company Number: JP-VERTEX PHARMACEUTICALS INC.-AE-2012-001078

PATIENT
  Age: 57 Year
  Sex: Female

DRUGS (12)
  1. REBETOL [Concomitant]
     Route: 048
  2. REBETOL [Concomitant]
     Route: 048
  3. TELAVIC (TELAPREVIR) [Suspect]
     Indication: HEPATITIS C
     Route: 048
     Dates: start: 20120111, end: 20120113
  4. EPADEL S [Concomitant]
     Route: 048
  5. REBETOL [Concomitant]
     Indication: HEPATITIS C
     Route: 048
  6. DEPAS [Concomitant]
     Route: 048
  7. FEROTYM [Concomitant]
     Route: 048
  8. LIVALO [Concomitant]
     Route: 048
  9. ETIZOLAM [Concomitant]
     Route: 048
  10. PEG-INTRON [Concomitant]
     Route: 058
     Dates: start: 20120220
  11. PEG-INTRON [Concomitant]
     Indication: HEPATITIS C
     Route: 058
     Dates: start: 20120111, end: 20120213
  12. TELAVIC (TELAPREVIR) [Suspect]
     Route: 048
     Dates: start: 20120120

REACTIONS (1)
  - RENAL DISORDER [None]
